FAERS Safety Report 5432970-7 (Version None)
Quarter: 2007Q3

REPORT INFORMATION
  Report Type: 
  Country: None (occurrence: None)
  Receive Date: 20070831
  Receipt Date: 20070821
  Transmission Date: 20080115
  Serious: Yes (Hospitalization)
  Sender: FDA-Public Use
  Company Number: CA-JNJFOC-20070803288

PATIENT
  Sex: Female
  Weight: 73.9 kg

DRUGS (2)
  1. TRABECTEDIN [Suspect]
     Indication: OVARIAN CANCER
     Route: 042
  2. DOXORUBICIN HCL [Suspect]
     Indication: OVARIAN CANCER
     Route: 042

REACTIONS (5)
  - INFECTION [None]
  - NAUSEA [None]
  - PYREXIA [None]
  - SYNCOPE VASOVAGAL [None]
  - VOMITING [None]
